FAERS Safety Report 25669901 (Version 2)
Quarter: 2025Q3

REPORT INFORMATION
  Report Type: Spontaneous
  Country: EU (occurrence: EU)
  Receive Date: 20250812
  Receipt Date: 20250820
  Transmission Date: 20251020
  Serious: Yes (Other)
  Sender: CELLTRION
  Company Number: None

PATIENT

DRUGS (2)
  1. ADALIMUMAB [Suspect]
     Active Substance: ADALIMUMAB
     Indication: Product used for unknown indication
     Dates: start: 20240530, end: 20250515
  2. ADALIMUMAB [Suspect]
     Active Substance: ADALIMUMAB

REACTIONS (1)
  - Adult failure to thrive [Not Recovered/Not Resolved]
